FAERS Safety Report 19798623 (Version 1)
Quarter: 2021Q3

REPORT INFORMATION
  Report Type: Spontaneous
  Country: US (occurrence: US)
  Receive Date: 20210907
  Receipt Date: 20210907
  Transmission Date: 20211014
  Serious: Yes (Other)
  Sender: FDA-Public Use
  Company Number: US-PFIZER INC-202101117360

PATIENT
  Age: 68 Year
  Sex: Female
  Weight: 72.57 kg

DRUGS (3)
  1. INLYTA [Suspect]
     Active Substance: AXITINIB
     Dosage: 5 MG, 2X/DAY
     Route: 048
     Dates: start: 202012
  2. INLYTA [Suspect]
     Active Substance: AXITINIB
     Indication: RENAL CANCER STAGE IV
     Dosage: 5 MG, 1X/DAY
     Route: 048
     Dates: start: 202012
  3. KEYTRUDA [Concomitant]
     Active Substance: PEMBROLIZUMAB
     Indication: NEOPLASM MALIGNANT
     Dosage: EVERY 3 WEEKS

REACTIONS (6)
  - Off label use [Unknown]
  - Choking [Unknown]
  - Oropharyngeal pain [Unknown]
  - Dysphagia [Unknown]
  - Tongue discomfort [Unknown]
  - Cough [Unknown]

NARRATIVE: CASE EVENT DATE: 202012
